FAERS Safety Report 7132790-1 (Version None)
Quarter: 2010Q4

REPORT INFORMATION
  Report Type: 
  Country: None (occurrence: None)
  Receive Date: 20101202
  Receipt Date: 20101122
  Transmission Date: 20110411
  Serious: Yes (Other)
  Sender: FDA-Public Use
  Company Number: US-PFIZER INC-2010155107

PATIENT
  Sex: Male

DRUGS (3)
  1. VIAGRA [Suspect]
     Dosage: 50 MG, AS NEEDED
     Route: 048
  2. VIAGRA [Suspect]
     Dosage: 100 MG, AS NEEDED
  3. LISINOPRIL [Concomitant]
     Dosage: UNK

REACTIONS (2)
  - HEADACHE [None]
  - PALPITATIONS [None]
